FAERS Safety Report 6538792-8 (Version None)
Quarter: 2010Q1

REPORT INFORMATION
  Report Type: 
  Country: None (occurrence: None)
  Receive Date: 20100114
  Receipt Date: 20100114
  Transmission Date: 20100710
  Serious: Yes (Hospitalization)
  Sender: FDA-Public Use
  Company Number: None

PATIENT
  Age: 17 Year
  Sex: Female
  Weight: 58.9676 kg

DRUGS (1)
  1. CELEXA [Suspect]

REACTIONS (6)
  - AGGRESSION [None]
  - AMNESIA [None]
  - ASTHENIA [None]
  - DELUSION [None]
  - DISORIENTATION [None]
  - FATIGUE [None]
